FAERS Safety Report 5622861-0 (Version None)
Quarter: 2008Q1

REPORT INFORMATION
  Report Type: 
  Country: None (occurrence: None)
  Receive Date: 20080207
  Receipt Date: 20080207
  Transmission Date: 20080703
  Serious: Yes (Hospitalization)
  Sender: FDA-Public Use
  Company Number: None

PATIENT
  Age: 63 Year
  Sex: Female
  Weight: 89.5 kg

DRUGS (2)
  1. HEPARIN [Suspect]
     Indication: HAEMODIALYSIS
     Dosage: 5000 UNITS IVP
     Route: 042
  2. HEPARIN [Suspect]

REACTIONS (8)
  - DYSPNOEA [None]
  - FEELING ABNORMAL [None]
  - HYPOTENSION [None]
  - MOANING [None]
  - NAUSEA [None]
  - RECTAL TENESMUS [None]
  - RESTLESSNESS [None]
  - VOMITING [None]
